FAERS Safety Report 5714999-4 (Version None)
Quarter: 2008Q2

REPORT INFORMATION
  Report Type: 
  Country: None (occurrence: None)
  Receive Date: 20080423
  Receipt Date: 20080418
  Transmission Date: 20081010
  Serious: Yes (Hospitalization)
  Sender: FDA-Public Use
  Company Number: FR-WYE-G01424408

PATIENT
  Sex: Female

DRUGS (2)
  1. ADVIL [Suspect]
     Indication: MUSCULOSKELETAL CHEST PAIN
     Dosage: UNKNOWN
     Route: 048
     Dates: start: 20080201, end: 20080201
  2. HERBAL PREPARATION [Concomitant]
     Indication: CYSTITIS
     Dosage: UNKNOWN
     Dates: start: 20080201

REACTIONS (9)
  - DYSPNOEA [None]
  - HYPERGLYCAEMIA [None]
  - LIVER DISORDER [None]
  - METABOLIC ACIDOSIS [None]
  - PROTHROMBIN TIME RATIO DECREASED [None]
  - RENAL FAILURE ACUTE [None]
  - TACHYCARDIA [None]
  - THROMBOCYTOPENIA [None]
  - URINARY RETENTION [None]
